FAERS Safety Report 6223728-X (Version None)
Quarter: 2009Q2

REPORT INFORMATION
  Report Type: 
  Country: None (occurrence: None)
  Receive Date: 20090611
  Receipt Date: 20090324
  Transmission Date: 20091009
  Serious: No
  Sender: FDA-Public Use
  Company Number: PR-ABBOTT-09P-131-0564537-00

PATIENT
  Sex: Male
  Weight: 85.806 kg

DRUGS (5)
  1. HUMIRA [Suspect]
     Indication: CROHN'S DISEASE
     Route: 058
     Dates: start: 20081001, end: 20090101
  2. IMURAN [Concomitant]
     Indication: CROHN'S DISEASE
     Route: 048
  3. PREDNISONE [Concomitant]
     Indication: RHEUMATOID ARTHRITIS
     Route: 048
  4. ADVAIR HFA [Concomitant]
     Indication: PULMONARY FIBROSIS
     Dosage: DISKUS
     Route: 055
  5. ALBUTEROL [Concomitant]
     Indication: PULMONARY FIBROSIS
     Dosage: NEBULIZER
     Route: 055

REACTIONS (9)
  - ABDOMINAL DISTENSION [None]
  - ABDOMINAL PAIN [None]
  - BACK PAIN [None]
  - DIZZINESS [None]
  - NAUSEA [None]
  - POLLAKIURIA [None]
  - PULMONARY FIBROSIS [None]
  - RENAL PAIN [None]
  - VOMITING [None]
